FAERS Safety Report 6922814-6 (Version None)
Quarter: 2010Q3

REPORT INFORMATION
  Report Type: 
  Country: None (occurrence: None)
  Receive Date: 20100813
  Receipt Date: 20100803
  Transmission Date: 20110219
  Serious: Yes (Other)
  Sender: FDA-Public Use
  Company Number: DE-PFIZER INC-2010097172

PATIENT
  Age: 25 Year
  Sex: Female
  Weight: 62 kg

DRUGS (3)
  1. DETRUSITOL [Suspect]
     Indication: MICTURITION DISORDER
     Dosage: 2 MG, 2X/DAY
     Route: 048
     Dates: start: 20100719, end: 20100722
  2. TYSABRI [Concomitant]
     Indication: MULTIPLE SCLEROSIS
     Dosage: 300 MG, UNK
     Route: 042
  3. NEURONTIN [Concomitant]
     Indication: NEURALGIA
     Dosage: 300/300/0/900MG/ DAY
     Route: 048

REACTIONS (2)
  - AFFECT LABILITY [None]
  - SUICIDAL IDEATION [None]
